FAERS Safety Report 25370178 (Version 1)
Quarter: 2025Q2

REPORT INFORMATION
  Report Type: Spontaneous
  Country: ES (occurrence: ES)
  Receive Date: 20250528
  Receipt Date: 20250528
  Transmission Date: 20250717
  Serious: Yes (Hospitalization)
  Sender: NOVO NORDISK
  Company Number: None

PATIENT
  Age: 73 Year
  Sex: Male

DRUGS (16)
  1. RYBELSUS [Suspect]
     Active Substance: SEMAGLUTIDE
     Indication: Diabetes mellitus
     Dosage: 14 MG, QD (AM)
     Route: 048
     Dates: start: 20250325
  2. PEITEL [Concomitant]
     Indication: Contusion
     Route: 061
     Dates: start: 20210707
  3. LANSOPRAZOL CINFA [Concomitant]
     Indication: Dyspepsia
     Route: 048
     Dates: start: 20210930
  4. JARDIANCE [Concomitant]
     Active Substance: EMPAGLIFLOZIN
     Indication: Diabetes mellitus
     Dosage: 25 MG, QD
     Route: 048
     Dates: start: 20160706
  5. ATORVASTATIN CALCIUM [Concomitant]
     Active Substance: ATORVASTATIN CALCIUM
     Indication: Product used for unknown indication
     Dosage: 20 MG, QD (AT NIGHT)
     Route: 048
     Dates: start: 20201204
  6. ENALAPRIL [Concomitant]
     Active Substance: ENALAPRIL
     Indication: Product used for unknown indication
     Dosage: 20 MG, QD (AT NIGHT)
     Route: 048
     Dates: start: 20240412
  7. ASPIRIN [Concomitant]
     Active Substance: ASPIRIN
     Indication: Dyspepsia
     Dosage: 100 MG, BID (AT BREAKFAST AND DINNER)
     Route: 048
     Dates: start: 20170419
  8. DUTASTERIDE\TAMSULOSIN HYDROCHLORIDE [Concomitant]
     Active Substance: DUTASTERIDE\TAMSULOSIN HYDROCHLORIDE
     Indication: Benign prostatic hyperplasia
     Route: 048
     Dates: start: 20171213
  9. BRIPIO [Concomitant]
     Indication: Glaucoma
     Dates: start: 20240409
  10. MIRTAZAPINE [Concomitant]
     Active Substance: MIRTAZAPINE
     Indication: Diabetes mellitus
     Dosage: 15 MG, QD (AT NIGHT)
     Route: 048
     Dates: start: 20110329
  11. VENTOLIN [Concomitant]
     Active Substance: ALBUTEROL SULFATE
     Indication: Sleep apnoea syndrome
     Dosage: 100 ?G, TID
     Dates: start: 20170601
  12. ARCOXIA [Concomitant]
     Active Substance: ETORICOXIB
     Indication: Contusion
     Dosage: 90 MG, QD (BEFORE BREAKFAST)
     Route: 048
     Dates: start: 20220804
  13. HERBALS\SAW PALMETTO [Concomitant]
     Active Substance: HERBALS\SAW PALMETTO
     Indication: Diabetes mellitus
     Dosage: 160 ?G, BID (AT BREAKFAST AND DINNER)
     Route: 048
     Dates: start: 20190207
  14. PROPIVERINE HYDROCHLORIDE [Concomitant]
     Active Substance: PROPIVERINE HYDROCHLORIDE
     Indication: Elective surgery
     Dosage: 30 MG, BID (EVERY 12H)
     Route: 048
     Dates: start: 20210420
  15. ACETAMINOPHEN [Concomitant]
     Active Substance: ACETAMINOPHEN
     Indication: Elective surgery
     Dosage: 1 G, TID (BREAKFAST, LUNCH, DINNER)
     Route: 048
     Dates: start: 20220527
  16. MIRTAZAPINE [Concomitant]
     Active Substance: MIRTAZAPINE
     Indication: Infantile apnoea
     Dosage: 30 MG, QD (AT BREAKFAST)
     Route: 048
     Dates: start: 20190320

REACTIONS (2)
  - Constipation [Not Recovered/Not Resolved]
  - Intestinal obstruction [Not Recovered/Not Resolved]

NARRATIVE: CASE EVENT DATE: 20250325
